FAERS Safety Report 9620920 (Version 1)
Quarter: 2013Q4

REPORT INFORMATION
  Report Type: Spontaneous
  Country: US (occurrence: US)
  Receive Date: 20131015
  Receipt Date: 20131015
  Transmission Date: 20140711
  Serious: Yes (Hospitalization)
  Sender: FDA-Public Use
  Company Number: US-BAYER-2013-121601

PATIENT
  Sex: 0

DRUGS (1)
  1. STIVARGA [Suspect]

REACTIONS (1)
  - Swelling [None]
